FAERS Safety Report 12957363 (Version 2)
Quarter: 2016Q4

REPORT INFORMATION
  Report Type: Spontaneous
  Country: US (occurrence: US)
  Receive Date: 20161118
  Receipt Date: 20161205
  Transmission Date: 20170207
  Serious: Yes (Death, Other)
  Sender: FDA-Public Use
  Company Number: US-009507513-1611USA007148

PATIENT
  Age: 74 Year
  Sex: Male

DRUGS (1)
  1. KEYTRUDA [Suspect]
     Active Substance: PEMBROLIZUMAB
     Indication: MESOTHELIOMA
     Dosage: UNK
     Route: 042
     Dates: start: 20151016, end: 201602

REACTIONS (2)
  - Mesothelioma [Fatal]
  - Product use issue [Unknown]

NARRATIVE: CASE EVENT DATE: 20151016
